FAERS Safety Report 9899381 (Version 1)
Quarter: 2014Q1

REPORT INFORMATION
  Report Type: Report from Study
  Country: US (occurrence: US)
  Receive Date: 20140214
  Receipt Date: 20140214
  Transmission Date: 20141002
  Serious: Yes (Other)
  Sender: FDA-Public Use
  Company Number: US-ACTELION-A-US2014-94738

PATIENT
  Age: 63 Year
  Sex: Female

DRUGS (6)
  1. TRACLEER [Suspect]
     Indication: PULMONARY ARTERIAL HYPERTENSION
     Dosage: UNK
     Route: 048
  2. ALDACTONE [Suspect]
  3. SILDENAFIL [Concomitant]
  4. COUMADIN [Concomitant]
  5. REMODULIN [Concomitant]
  6. FLOLAN [Concomitant]

REACTIONS (7)
  - Local swelling [Unknown]
  - Adverse drug reaction [Recovering/Resolving]
  - Arthralgia [Unknown]
  - Nausea [Unknown]
  - Pain [Unknown]
  - Headache [Unknown]
  - Musculoskeletal pain [Unknown]
